FAERS Safety Report 11903869 (Version 2)
Quarter: 2016Q1

REPORT INFORMATION
  Report Type: Report from Study
  Country: JP (occurrence: JP)
  Receive Date: 20160108
  Receipt Date: 20160209
  Transmission Date: 20160526
  Serious: Yes (Death, Hospitalization)
  Sender: FDA-Public Use
  Company Number: JP-ASTRAZENECA-2016SE01995

PATIENT
  Age: 79 Year
  Sex: Male

DRUGS (9)
  1. JZOLOFT [Concomitant]
     Active Substance: SERTRALINE HYDROCHLORIDE
     Indication: ANGINA PECTORIS
     Route: 048
     Dates: end: 20141217
  2. CARDENALIN [Concomitant]
     Active Substance: DOXAZOSIN MESYLATE
     Indication: ANGINA PECTORIS
     Route: 048
     Dates: end: 20141217
  3. HARNAL [Concomitant]
     Active Substance: TAMSULOSIN HYDROCHLORIDE
     Route: 048
     Dates: end: 20141104
  4. VESICARE [Concomitant]
     Active Substance: SOLIFENACIN SUCCINATE
     Indication: ANGINA PECTORIS
     Route: 048
     Dates: end: 20141208
  5. URINORM [Concomitant]
     Active Substance: BENZBROMARONE
     Indication: ANGINA PECTORIS
     Route: 048
     Dates: end: 20141217
  6. BAYASPIRIN [Concomitant]
     Active Substance: ASPIRIN
     Indication: ANGINA PECTORIS
     Route: 065
     Dates: end: 20141217
  7. ARTIST [Concomitant]
     Active Substance: CARVEDILOL
     Route: 048
     Dates: end: 20141127
  8. NEXIUM [Suspect]
     Active Substance: ESOMEPRAZOLE MAGNESIUM
     Indication: PROPHYLAXIS AGAINST GASTROINTESTINAL ULCER
     Route: 048
     Dates: start: 20131116, end: 20141217
  9. LAC-B [Concomitant]
     Active Substance: BIFIDOBACTERIUM SPP.
     Route: 048
     Dates: end: 20140813

REACTIONS (6)
  - Decreased appetite [Fatal]
  - Fall [Unknown]
  - Feeding disorder [Fatal]
  - Insomnia [Unknown]
  - Gastric cancer [Fatal]
  - Extradural haematoma [Recovered/Resolved]

NARRATIVE: CASE EVENT DATE: 20140621
